FAERS Safety Report 17254152 (Version 1)
Quarter: 2020Q1

REPORT INFORMATION
  Report Type: Spontaneous
  Country: HK (occurrence: HK)
  Receive Date: 20200109
  Receipt Date: 20200109
  Transmission Date: 20200409
  Serious: Yes (Hospitalization, Disabling, Other)
  Sender: FDA-Public Use
  Company Number: HK-AMNEAL PHARMACEUTICALS-2019-AMRX-03497

PATIENT
  Age: 81 Year
  Sex: Female

DRUGS (1)
  1. PHENYTOIN SODIUM. [Suspect]
     Active Substance: PHENYTOIN SODIUM
     Indication: PETIT MAL EPILEPSY
     Dosage: 100 MILLIGRAM, EVERY 8HR (VIA A 22G CATHETER)
     Route: 042

REACTIONS (1)
  - Purple glove syndrome [Not Recovered/Not Resolved]
